FAERS Safety Report 16076906 (Version 1)
Quarter: 2019Q1

REPORT INFORMATION
  Report Type: Spontaneous
  Country: US (occurrence: US)
  Receive Date: 20190315
  Receipt Date: 20190315
  Transmission Date: 20190418
  Serious: Yes (Hospitalization)
  Sender: FDA-Public Use
  Company Number: US-PERRIGO-19US002907

PATIENT
  Age: 16 Year
  Sex: Male

DRUGS (2)
  1. IBUPROFEN. [Suspect]
     Active Substance: IBUPROFEN
     Indication: ABDOMINAL PAIN
     Dosage: UNKNOWN, UNKNOWN
     Route: 048
  2. KETOROLAC [Suspect]
     Active Substance: KETOROLAC\KETOROLAC TROMETHAMINE
     Indication: ABDOMINAL PAIN
     Dosage: UNKNOWN, UNKNOWN
     Route: 065

REACTIONS (1)
  - Gastric ulcer perforation [Recovered/Resolved]
